FAERS Safety Report 8388412-5 (Version None)
Quarter: 2012Q2

REPORT INFORMATION
  Report Type: 
  Country: None (occurrence: None)
  Receive Date: 20120525
  Receipt Date: 20120514
  Transmission Date: 20120825
  Serious: Yes (Life-Threatening, Hospitalization)
  Sender: FDA-Public Use
  Company Number: JP-GILEAD-2012-0055405

PATIENT
  Age: 60 Year
  Sex: Female

DRUGS (18)
  1. CYCLOSPORINE [Concomitant]
     Indication: INTERSTITIAL LUNG DISEASE
     Dosage: 100MG PER DAY
     Route: 065
  2. FUROSEMIDE [Concomitant]
     Route: 048
  3. NEORAL [Concomitant]
     Route: 048
  4. MUCOSTA [Concomitant]
     Indication: PROPHYLAXIS
     Route: 048
  5. COTRIM [Concomitant]
     Indication: PROPHYLAXIS
     Route: 048
  6. GASMOTIN [Concomitant]
     Indication: GASTROINTESTINAL TRACT IRRITATION
     Route: 048
  7. ALFAROL [Concomitant]
     Indication: PROPHYLAXIS
     Route: 048
  8. AMINO ACID INJ [Concomitant]
     Indication: PROPHYLAXIS
     Route: 048
  9. AMOBAN [Concomitant]
     Route: 048
  10. PAXIL [Concomitant]
     Route: 048
  11. ALDACTONE [Concomitant]
     Route: 048
  12. RABEPRAZOLE SODIUM [Concomitant]
     Indication: PROPHYLAXIS
     Route: 048
  13. LETAIRIS [Suspect]
     Indication: PULMONARY ARTERIAL HYPERTENSION
     Dosage: 2.5 MG, QD
     Route: 048
     Dates: start: 20110517, end: 20110523
  14. ZOLPIDEM [Concomitant]
     Route: 048
  15. MAGNESIUM SULFATE [Concomitant]
     Indication: PROPHYLAXIS
     Route: 048
  16. WARFARIN SODIUM [Concomitant]
     Indication: PULMONARY ARTERIAL HYPERTENSION
     Route: 048
  17. CALCIUM CARBONATE [Concomitant]
     Indication: PROPHYLAXIS
     Route: 048
  18. FUNGIZONE [Concomitant]
     Indication: INFECTION PROPHYLAXIS
     Route: 048

REACTIONS (2)
  - RESPIRATORY FAILURE [None]
  - INTERSTITIAL LUNG DISEASE [None]
